FAERS Safety Report 9416982 (Version 1)
Quarter: 2013Q3

REPORT INFORMATION
  Report Type: Spontaneous
  Country: US (occurrence: None)
  Receive Date: 20130722
  Receipt Date: 20130722
  Transmission Date: 20140515
  Serious: Yes (Hospitalization)
  Sender: FDA-Public Use
  Company Number: 2013P1011866

PATIENT
  Age: 56 Year
  Sex: Female

DRUGS (3)
  1. TRANEXAMIC ACID [Suspect]
     Indication: HIP SURGERY
  2. CLINDAMYCIN [Concomitant]
  3. VANCOMYCIN [Concomitant]

REACTIONS (1)
  - Myocardial infarction [None]
